FAERS Safety Report 17985014 (Version 3)
Quarter: 2020Q3

REPORT INFORMATION
  Report Type: Report from Study
  Country: BR (occurrence: BR)
  Receive Date: 20200630
  Receipt Date: 20200810
  Transmission Date: 20201103
  Serious: Yes (Other)
  Sender: FDA-Public Use
  Company Number: NVSC2020BR174375

PATIENT
  Age: 34 Year
  Sex: Male
  Weight: 75 kg

DRUGS (3)
  1. TORSILAX [Concomitant]
     Active Substance: ACETAMINOPHEN\CAFFEINE\CARISOPRODOL\DICLOFENAC
     Indication: PAIN
     Dosage: 1 DF, Q8H
     Route: 065
     Dates: start: 201709
  2. COSENTYX [Suspect]
     Active Substance: SECUKINUMAB
     Indication: ANKYLOSING SPONDYLITIS
     Dosage: 150 MG, QW
     Route: 065
     Dates: start: 20190614
  3. COSENTYX [Suspect]
     Active Substance: SECUKINUMAB
     Dosage: 150 MG, QMO
     Route: 065

REACTIONS (43)
  - Nasal congestion [Recovering/Resolving]
  - Pelvic pain [Not Recovered/Not Resolved]
  - Musculoskeletal discomfort [Recovering/Resolving]
  - Device leakage [Unknown]
  - Myopia [Not Recovered/Not Resolved]
  - Insomnia [Recovering/Resolving]
  - Pyrexia [Recovered/Resolved]
  - Malaise [Not Recovered/Not Resolved]
  - Nervousness [Not Recovered/Not Resolved]
  - Feeling abnormal [Recovering/Resolving]
  - Ocular hyperaemia [Recovered/Resolved]
  - Deafness [Recovering/Resolving]
  - Pain [Recovering/Resolving]
  - Gait disturbance [Recovering/Resolving]
  - Peripheral swelling [Recovering/Resolving]
  - Conjunctivitis [Recovered/Resolved]
  - Accidental exposure to product [Unknown]
  - Tremor [Recovered/Resolved]
  - Sluggishness [Recovering/Resolving]
  - Neuritis [Recovered/Resolved]
  - Head discomfort [Recovering/Resolving]
  - Loss of personal independence in daily activities [Recovering/Resolving]
  - Myocardial infarction [Recovered/Resolved]
  - Catarrh [Recovering/Resolving]
  - Spinal deformity [Not Recovered/Not Resolved]
  - Astigmatism [Not Recovered/Not Resolved]
  - Diarrhoea [Recovered/Resolved]
  - Nasopharyngitis [Recovered/Resolved]
  - Heart rate increased [Unknown]
  - Product prescribing error [Unknown]
  - Hypertension [Recovered/Resolved]
  - Joint swelling [Recovering/Resolving]
  - Chills [Recovered/Resolved]
  - Fatigue [Not Recovered/Not Resolved]
  - Pelvic deformity [Unknown]
  - Device issue [Unknown]
  - Anxiety [Recovered/Resolved]
  - Asthenia [Recovered/Resolved]
  - Ankylosing spondylitis [Not Recovered/Not Resolved]
  - Vision blurred [Not Recovered/Not Resolved]
  - Dark circles under eyes [Recovered/Resolved]
  - Injury [Unknown]
  - Headache [Recovering/Resolving]

NARRATIVE: CASE EVENT DATE: 2019
